FAERS Safety Report 5907182-0 (Version None)
Quarter: 2008Q4

REPORT INFORMATION
  Report Type: 
  Country: None (occurrence: None)
  Receive Date: 20081003
  Receipt Date: 20080923
  Transmission Date: 20090506
  Serious: Yes (Other)
  Sender: FDA-Public Use
  Company Number: JP-AVENTIS-200813003JP

PATIENT
  Sex: Female

DRUGS (4)
  1. LANTUS [Suspect]
     Dosage: DOSE: 16 UNITS
     Route: 058
  2. LANTUS [Suspect]
     Dosage: DOSE: 13 UNITS
     Route: 058
  3. OPTICLIK (INSULIN INJECTION PEN) [Suspect]
  4. NOVORAPID [Concomitant]
     Dosage: DOSE: 3 UNITS
     Route: 058

REACTIONS (1)
  - HYPOGLYCAEMIC UNCONSCIOUSNESS [None]
